APPROVED DRUG PRODUCT: PROMETHAZINE HYDROCHLORIDE
Active Ingredient: PROMETHAZINE HYDROCHLORIDE
Strength: 12.5MG
Dosage Form/Route: TABLET;ORAL
Application: A209177 | Product #001
Applicant: STRIDES PHARMA GLOBAL PTE LTD
Approved: Jun 30, 2017 | RLD: No | RS: No | Type: DISCN